FAERS Safety Report 9200821 (Version 1)
Quarter: 2013Q1

REPORT INFORMATION
  Report Type: Spontaneous
  Country: US (occurrence: None)
  Receive Date: 20130328
  Receipt Date: 20130328
  Transmission Date: 20140127
  Serious: Yes (Other)
  Sender: FDA-Public Use
  Company Number: None

PATIENT
  Age: 65 Year
  Sex: Male

DRUGS (2)
  1. ZYTIGA 250MG JANSSEN BIOTECH [Suspect]
     Indication: PROSTATE CANCER
     Route: 048
     Dates: start: 201302
  2. PREDNISONE 5MG [Suspect]
     Indication: ADJUVANT THERAPY
     Route: 048
     Dates: start: 201302

REACTIONS (6)
  - Neuropathy peripheral [None]
  - Paraesthesia [None]
  - Hypoaesthesia [None]
  - Muscle spasms [None]
  - Abdominal pain upper [None]
  - Blood potassium decreased [None]
